FAERS Safety Report 6858495-X (Version None)
Quarter: 2010Q3

REPORT INFORMATION
  Report Type: 
  Country: None (occurrence: None)
  Receive Date: 20100719
  Receipt Date: 20080219
  Transmission Date: 20110219
  Serious: Yes (Other)
  Sender: FDA-Public Use
  Company Number: US-PFIZER INC-2008013892

PATIENT
  Sex: Female

DRUGS (4)
  1. CHANTIX [Suspect]
     Indication: SMOKING CESSATION THERAPY
     Dates: start: 20080101, end: 20080101
  2. COREG [Concomitant]
  3. LASIX [Concomitant]
  4. DIOVANE [Concomitant]

REACTIONS (7)
  - AGITATION [None]
  - CHEST DISCOMFORT [None]
  - HEADACHE [None]
  - MUSCLE TWITCHING [None]
  - NAUSEA [None]
  - PALPITATIONS [None]
  - VOMITING [None]
